FAERS Safety Report 14145812 (Version 1)
Quarter: 2017Q4

REPORT INFORMATION
  Report Type: Spontaneous
  Country: BR (occurrence: BR)
  Receive Date: 20171031
  Receipt Date: 20171031
  Transmission Date: 20180321
  Serious: Yes (Other)
  Sender: FDA-Public Use
  Company Number: BR-PFIZER INC-2017273374

PATIENT
  Age: 62 Year
  Sex: Female

DRUGS (4)
  1. LYRICA [Suspect]
     Active Substance: PREGABALIN
     Indication: PAIN
     Dosage: 150 MG
     Dates: start: 201701
  2. LYRICA [Suspect]
     Active Substance: PREGABALIN
     Dosage: A TABLET OF 75MG A DAY AND A TABLET OF 150MG AT NIGHT BEFORE BEDTIME
  3. CALTRATE [Concomitant]
     Active Substance: CALCIUM CARBONATE
     Dosage: UNK
  4. FRONTAL [Concomitant]
     Active Substance: ALPRAZOLAM
     Indication: FEELING ABNORMAL
     Dosage: UNK

REACTIONS (6)
  - Product use in unapproved indication [Unknown]
  - Clumsiness [Not Recovered/Not Resolved]
  - Epilepsy [Unknown]
  - Reflexes abnormal [Not Recovered/Not Resolved]
  - Tongue movement disturbance [Not Recovered/Not Resolved]
  - Memory impairment [Not Recovered/Not Resolved]

NARRATIVE: CASE EVENT DATE: 2017
